FAERS Safety Report 9524191 (Version 1)
Quarter: 2013Q3

REPORT INFORMATION
  Report Type: Report from Study
  Country: CA (occurrence: CA)
  Receive Date: 20130916
  Receipt Date: 20130916
  Transmission Date: 20140515
  Serious: Yes (Hospitalization, Other)
  Sender: FDA-Public Use
  Company Number: CA-JNJFOC-20130904887

PATIENT
  Sex: Female
  Weight: 90 kg

DRUGS (2)
  1. REMICADE [Suspect]
     Indication: COLITIS ULCERATIVE
     Route: 042
     Dates: start: 201302
  2. REMICADE [Suspect]
     Indication: COLITIS ULCERATIVE
     Route: 042
     Dates: start: 20130712

REACTIONS (5)
  - Lipoma [Not Recovered/Not Resolved]
  - Tachycardia [Recovered/Resolved]
  - Constipation [Recovered/Resolved]
  - Colitis ulcerative [Recovered/Resolved]
  - Chest pain [Recovered/Resolved]
